FAERS Safety Report 9790727 (Version 2)
Quarter: 2014Q1

REPORT INFORMATION
  Report Type: Spontaneous
  Country: US (occurrence: US)
  Receive Date: 20131231
  Receipt Date: 20140204
  Transmission Date: 20141002
  Serious: No
  Sender: FDA-Public Use
  Company Number: US-PFIZER INC-2013371358

PATIENT
  Age: 49 Year
  Sex: Female

DRUGS (14)
  1. IBUPROFEN [Suspect]
     Dosage: UNK
  2. CEPHALEXIN [Suspect]
     Indication: INFECTION
     Dosage: UNK
     Route: 048
  3. DULOXETINE [Suspect]
     Dosage: UNK
  4. NAPROXEN [Suspect]
     Dosage: UNK
  5. NAPROXEN SODIUM [Suspect]
     Dosage: UNK
  6. CYMBALTA [Suspect]
     Indication: PAIN
     Dosage: 30 MG, DAILY
     Route: 048
     Dates: start: 20110330, end: 20110418
  7. CYMBALTA [Suspect]
     Indication: NEUROPATHY PERIPHERAL
  8. NAPROSYN [Suspect]
     Indication: PAIN
     Dosage: UNK
     Route: 048
  9. MOTRIN [Suspect]
     Dosage: UNK
  10. METFORMIN [Concomitant]
     Dosage: UNK
  11. GLYBURIDE [Concomitant]
     Dosage: UNK
  12. PROTONIX [Concomitant]
     Dosage: UNK
  13. LIPITOR [Concomitant]
     Dosage: UNK
  14. OXYCODONE [Concomitant]
     Dosage: UNK

REACTIONS (4)
  - Drug hypersensitivity [Unknown]
  - Nausea [Recovered/Resolved]
  - Vomiting [Recovered/Resolved]
  - Diarrhoea [Recovered/Resolved]
